FAERS Safety Report 6901996-6 (Version None)
Quarter: 2010Q3

REPORT INFORMATION
  Report Type: 
  Country: None (occurrence: None)
  Receive Date: 20100803
  Receipt Date: 20100727
  Transmission Date: 20110219
  Serious: Yes (Congenital Anomaly)
  Sender: FDA-Public Use
  Company Number: AR-B.I. PHARMACEUTICALS,INC./RIDGEFIELD-2010-BP-08478BP

PATIENT
  Sex: Female
  Weight: 4 kg

DRUGS (6)
  1. VIRAMUNE [Suspect]
     Indication: DRUG EXPOSURE DURING PREGNANCY
     Route: 064
     Dates: start: 20021119, end: 20021204
  2. VIRAMUNE [Suspect]
     Route: 064
     Dates: start: 20021205, end: 20030327
  3. COMBIVIR [Concomitant]
     Indication: DRUG EXPOSURE DURING PREGNANCY
     Route: 064
     Dates: start: 20021119, end: 20030327
  4. FOLIC ACID [Concomitant]
     Route: 064
  5. IRON [Concomitant]
     Route: 064
  6. MULTI-VITAMINS [Concomitant]
     Route: 064

REACTIONS (1)
  - HIP DYSPLASIA [None]
